FAERS Safety Report 4558372-3 (Version None)
Quarter: 2005Q1

REPORT INFORMATION
  Report Type: 
  Country: None (occurrence: None)
  Receive Date: 20050121
  Receipt Date: 20050110
  Transmission Date: 20050727
  Serious: Yes (Hospitalization)
  Sender: FDA-Public Use
  Company Number: US-MERCK-0501USA00861

PATIENT
  Age: 67 Year
  Sex: Female

DRUGS (3)
  1. SINGULAIR [Suspect]
     Route: 048
  2. ADVAIR DISKUS 100/50 [Concomitant]
     Route: 065
  3. ALBUTEROL [Concomitant]
     Route: 065

REACTIONS (5)
  - ALLERGIC GRANULOMATOUS ANGIITIS [None]
  - HAEMOLYTIC ANAEMIA [None]
  - LUNG INFILTRATION [None]
  - MUSCLE ENZYME INCREASED [None]
  - MYOCARDITIS [None]
